FAERS Safety Report 5748347-0 (Version None)
Quarter: 2008Q2

REPORT INFORMATION
  Report Type: 
  Country: None (occurrence: None)
  Receive Date: 20080523
  Receipt Date: 20080513
  Transmission Date: 20081010
  Serious: No
  Sender: FDA-Public Use
  Company Number: DE-PFIZER INC-2008029331

PATIENT
  Sex: Male

DRUGS (1)
  1. INSPRA [Suspect]
     Indication: MYOCARDIAL INFARCTION
     Route: 048

REACTIONS (1)
  - NO ADVERSE EVENT [None]
